FAERS Safety Report 8264733-1 (Version None)
Quarter: 2012Q2

REPORT INFORMATION
  Report Type: 
  Country: None (occurrence: None)
  Receive Date: 20120406
  Receipt Date: 20120327
  Transmission Date: 20120825
  Serious: Yes (Other)
  Sender: FDA-Public Use
  Company Number: FR-JNJFOC-20120314511

PATIENT
  Age: 50 Year
  Sex: Male

DRUGS (1)
  1. REMICADE [Suspect]
     Indication: CROHN'S DISEASE
     Dosage: DOSE: 6 OR 9 MG/KG
     Route: 042
     Dates: start: 20090101

REACTIONS (1)
  - MALIGNANT MELANOMA [None]
